FAERS Safety Report 25776578 (Version 1)
Quarter: 2025Q3

REPORT INFORMATION
  Report Type: Spontaneous
  Country: US (occurrence: US)
  Receive Date: 20250909
  Receipt Date: 20250909
  Transmission Date: 20251021
  Serious: No
  Sender: DOMPE FARMACEUTICI
  Company Number: US-FARMAPROD-202503-0751

PATIENT
  Age: 87 Year
  Sex: Female

DRUGS (5)
  1. OXERVATE [Suspect]
     Active Substance: CENEGERMIN-BKBJ
     Indication: Neurotrophic keratopathy
     Route: 047
     Dates: start: 20250304
  2. OXERVATE [Suspect]
     Active Substance: CENEGERMIN-BKBJ
  3. RETAINE FLAX [Concomitant]
  4. TRAVOPROST [Concomitant]
     Active Substance: TRAVOPROST
  5. TIMOLOL [Concomitant]
     Active Substance: TIMOLOL

REACTIONS (4)
  - Product dose omission issue [Unknown]
  - Eye irritation [Unknown]
  - Eye pain [Unknown]
  - Photophobia [Unknown]

NARRATIVE: CASE EVENT DATE: 20250304
